FAERS Safety Report 12396594 (Version 1)
Quarter: 2016Q2

REPORT INFORMATION
  Report Type: Spontaneous
  Country: BR (occurrence: BR)
  Receive Date: 20160524
  Receipt Date: 20160524
  Transmission Date: 20160815
  Serious: Yes (Hospitalization)
  Sender: FDA-Public Use
  Company Number: BR-AMGEN-BRASP2016064685

PATIENT
  Age: 45 Year
  Sex: Female
  Weight: 104 kg

DRUGS (4)
  1. ENBREL [Suspect]
     Active Substance: ETANERCEPT
     Indication: RHEUMATOID ARTHRITIS
     Dosage: 50 MG, ONCE A WEEK
     Route: 065
     Dates: start: 20140101
  2. ARAVA [Concomitant]
     Active Substance: LEFLUNOMIDE
     Indication: RHEUMATIC DISORDER
     Dosage: 20 MG, ONE OF 20MG PER DAY AT NIGHT
  3. CORUS                              /00023550/ [Concomitant]
     Indication: HYPERTENSION
     Dosage: 50 MG, 2 TABLETS OF 50MG PER DAY ONE IN THE MORNING AND ONE AT NIGHT
  4. DILTIAZEM HYDROCHLORIDE. [Concomitant]
     Active Substance: DILTIAZEM HYDROCHLORIDE
     Dosage: 180 MG, 3 TABLETS OF 60MG PER DAY

REACTIONS (5)
  - Condition aggravated [Unknown]
  - Dysphonia [Not Recovered/Not Resolved]
  - Asthma [Unknown]
  - Memory impairment [Not Recovered/Not Resolved]
  - Dyspnoea [Not Recovered/Not Resolved]
